FAERS Safety Report 6083605-4 (Version None)
Quarter: 2009Q1

REPORT INFORMATION
  Report Type: 
  Country: None (occurrence: None)
  Receive Date: 20090219
  Receipt Date: 20090217
  Transmission Date: 20090719
  Serious: Yes (Death)
  Sender: FDA-Public Use
  Company Number: US-BRISTOL-MYERS SQUIBB COMPANY-14444640

PATIENT
  Age: 59 Year
  Sex: Female
  Weight: 86 kg

DRUGS (11)
  1. IXEMPRA KIT [Suspect]
     Indication: BREAST CANCER METASTATIC
     Route: 042
     Dates: start: 20081103, end: 20081103
  2. IXEMPRA KIT [Suspect]
     Indication: MALIGNANT PLEURAL EFFUSION
     Route: 042
     Dates: start: 20081103, end: 20081103
  3. IXEMPRA KIT [Suspect]
     Indication: METASTASES TO BONE
     Route: 042
     Dates: start: 20081103, end: 20081103
  4. METHADONE HCL [Concomitant]
     Route: 048
  5. POTASSIUM CHLORIDE [Concomitant]
     Route: 048
  6. WELLBUTRIN [Concomitant]
     Dates: start: 20081001
  7. BISOPROLOL FUMARATE + HCTZ TABS [Concomitant]
     Dosage: 1 DOSAGE FORM= 5/6.25MG
     Route: 048
  8. XANAX [Concomitant]
     Indication: ANXIETY
     Route: 048
  9. METFORMIN HCL [Concomitant]
     Route: 048
  10. LASIX [Concomitant]
     Route: 048
  11. SYNTHROID [Concomitant]
     Route: 048

REACTIONS (1)
  - CARDIAC ARREST [None]
